FAERS Safety Report 5407113-6 (Version None)
Quarter: 2007Q3

REPORT INFORMATION
  Report Type: 
  Country: None (occurrence: None)
  Receive Date: 20070802
  Receipt Date: 20070403
  Transmission Date: 20080115
  Serious: Yes (Hospitalization)
  Sender: FDA-Public Use
  Company Number: 001#2#2007-00255

PATIENT
  Age: 66 Year
  Sex: Male

DRUGS (1)
  1. NEUPRO-6MG/24H (ROTIGOTINE) [Suspect]
     Indication: PARKINSON'S DISEASE
     Dosage: 6 MG/24H (6 MG/24H 1 IN 1 DAY(S)) TRANSDERMAL
     Route: 062
     Dates: start: 20070101

REACTIONS (6)
  - DIABETIC NEUROPATHY [None]
  - DISORIENTATION [None]
  - IRRITABILITY [None]
  - IVTH NERVE PARALYSIS [None]
  - MUSCLE DISORDER [None]
  - SLEEP ATTACKS [None]
